FAERS Safety Report 7231621-9 (Version None)
Quarter: 2011Q1

REPORT INFORMATION
  Report Type: 
  Country: None (occurrence: None)
  Receive Date: 20110118
  Receipt Date: 20110113
  Transmission Date: 20110831
  Serious: Yes (Other)
  Sender: FDA-Public Use
  Company Number: JP-PFIZER INC-2011009156

PATIENT
  Age: 52 Year
  Sex: Female

DRUGS (3)
  1. ATARAX [Suspect]
     Dosage: 25 MG, SINGLE AFTER SURGERY
     Route: 030
     Dates: start: 20101208
  2. ATROPINE [Concomitant]
     Dosage: UNK
     Route: 030
     Dates: start: 20101208, end: 20101208
  3. ATARAX [Suspect]
     Indication: ANAESTHETIC PREMEDICATION
     Dosage: 50 MG, SINGLE PRE-SURGERY
     Route: 030
     Dates: start: 20101208, end: 20101208

REACTIONS (1)
  - INJECTION SITE NECROSIS [None]
